FAERS Safety Report 17857172 (Version 9)
Quarter: 2021Q3

REPORT INFORMATION
  Report Type: Report from Study
  Country: None (occurrence: US)
  Receive Date: 20200603
  Receipt Date: 20210722
  Transmission Date: 20211014
  Serious: Yes (Other)
  Sender: FDA-Public Use
  Company Number: US-ABBVIE-20K-163-3422773-00

PATIENT
  Sex: Male

DRUGS (3)
  1. ACTEMRA [Concomitant]
     Active Substance: TOCILIZUMAB
     Indication: PRODUCT USED FOR UNKNOWN INDICATION
  2. RINVOQ [Suspect]
     Active Substance: UPADACITINIB
     Indication: RHEUMATOID ARTHRITIS
     Route: 048
  3. PREDNISONE. [Concomitant]
     Active Substance: PREDNISONE
     Indication: PRODUCT USED FOR UNKNOWN INDICATION

REACTIONS (18)
  - Neuropathy peripheral [Not Recovered/Not Resolved]
  - Acne [Recovered/Resolved]
  - Insomnia [Not Recovered/Not Resolved]
  - Infection susceptibility increased [Recovered/Resolved]
  - Skin infection [Not Recovered/Not Resolved]
  - Disability [Unknown]
  - Joint noise [Not Recovered/Not Resolved]
  - Pain [Not Recovered/Not Resolved]
  - Surgical failure [Recovered/Resolved]
  - Plantar fasciitis [Not Recovered/Not Resolved]
  - Localised infection [Recovered/Resolved]
  - Staphylococcal infection [Recovered/Resolved]
  - Injury [Recovered/Resolved]
  - Diabetes mellitus [Not Recovered/Not Resolved]
  - Rheumatoid arthritis [Not Recovered/Not Resolved]
  - Nasopharyngitis [Unknown]
  - Stenosis [Unknown]
  - Back pain [Recovering/Resolving]

NARRATIVE: CASE EVENT DATE: 2021
